FAERS Safety Report 21749045 (Version 3)
Quarter: 2023Q1

REPORT INFORMATION
  Report Type: Report from Study
  Country: ES (occurrence: ES)
  Receive Date: 20221219
  Receipt Date: 20230201
  Transmission Date: 20230418
  Serious: Yes (Hospitalization)
  Sender: FDA-Public Use
  Company Number: ES-EORTC-004747

PATIENT
  Age: 85 Year
  Sex: Female
  Weight: 58.3 kg

DRUGS (1)
  1. PALBOCICLIB [Suspect]
     Active Substance: PALBOCICLIB
     Indication: Hormone receptor positive breast cancer
     Dosage: 125 MG, CYCLIC (ONCE A DAY ORALLY FOR 21 DAYS, FOLLOWED BY 7 DAYS OFF TREATMENT)
     Route: 048
     Dates: start: 20221122, end: 20221205

REACTIONS (1)
  - Febrile neutropenia [Recovered/Resolved]

NARRATIVE: CASE EVENT DATE: 20221205
